FAERS Safety Report 6234776-8 (Version None)
Quarter: 2009Q2

REPORT INFORMATION
  Report Type: 
  Country: None (occurrence: None)
  Receive Date: 20090618
  Receipt Date: 20090609
  Transmission Date: 20091009
  Serious: Yes (Life-Threatening, Hospitalization)
  Sender: FDA-Public Use
  Company Number: DE-CVT-090364

PATIENT

DRUGS (1)
  1. RANEXA [Suspect]
     Indication: CORONARY ARTERY DISEASE
     Dosage: 375 MG, QD
     Route: 048
     Dates: start: 20090606, end: 20090608

REACTIONS (1)
  - CAMPYLOBACTER INTESTINAL INFECTION [None]
